FAERS Safety Report 4801533-6 (Version None)
Quarter: 2005Q4

REPORT INFORMATION
  Report Type: 
  Country: None (occurrence: None)
  Receive Date: 20051018
  Receipt Date: 20051003
  Transmission Date: 20060501
  Serious: Yes (Life-Threatening, Hospitalization)
  Sender: FDA-Public Use
  Company Number: CA-AMGEN-US152486

PATIENT
  Age: 81 Year
  Sex: Male

DRUGS (5)
  1. ENBREL [Suspect]
     Indication: RHEUMATOID ARTHRITIS
     Route: 058
     Dates: start: 20020711, end: 20050715
  2. LASIX [Concomitant]
  3. IRON [Concomitant]
  4. FOLIC ACID [Concomitant]
  5. METHOTREXATE [Concomitant]

REACTIONS (3)
  - DEVICE RELATED INFECTION [None]
  - HAEMODYNAMIC INSTABILITY [None]
  - STAPHYLOCOCCAL INFECTION [None]
